FAERS Safety Report 17639907 (Version 2)
Quarter: 2020Q2

REPORT INFORMATION
  Report Type: Spontaneous
  Country: MX (occurrence: MX)
  Receive Date: 20200407
  Receipt Date: 20200530
  Transmission Date: 20200713
  Serious: Yes (Other)
  Sender: FDA-Public Use
  Company Number: MX-ASTRAZENECA-2020SE48029

PATIENT
  Age: 54 Year
  Sex: Female
  Weight: 68 kg

DRUGS (2)
  1. LYNPARZA [Suspect]
     Active Substance: OLAPARIB
     Indication: OVARIAN CANCER
     Dosage: 8 CAPSULES IN THE MORNING AND 8 CAPSULES IN THE NIGHT
     Route: 048
     Dates: start: 201906, end: 202002
  2. LYNPARZA [Suspect]
     Active Substance: OLAPARIB
     Indication: OVARIAN CANCER
     Dosage: 2 TABLETS IN THE MORNING AND 2 TABLETS IN THE NIGHT
     Route: 048
     Dates: end: 20200315

REACTIONS (9)
  - Neoplasm [Unknown]
  - Dry throat [Recovered/Resolved]
  - Hepatic neoplasm [Unknown]
  - Pain [Recovered/Resolved]
  - Dysphonia [Unknown]
  - Visual impairment [Unknown]
  - Abdominal pain upper [Recovered/Resolved]
  - Nausea [Recovered/Resolved]
  - Cataract [Unknown]
